FAERS Safety Report 19493183 (Version 1)
Quarter: 2021Q3

REPORT INFORMATION
  Report Type: Report from Study
  Country: None (occurrence: AU)
  Receive Date: 20210705
  Receipt Date: 20210705
  Transmission Date: 20211014
  Serious: Yes (Hospitalization)
  Sender: FDA-Public Use
  Company Number: AU-ABBVIE-21K-008-3976872-00

PATIENT
  Sex: Female

DRUGS (1)
  1. IMBRUVICA [Suspect]
     Active Substance: IBRUTINIB
     Indication: CHRONIC LYMPHOCYTIC LEUKAEMIA
     Route: 048
     Dates: start: 20210126

REACTIONS (11)
  - Insomnia [Not Recovered/Not Resolved]
  - Nail infection [Recovering/Resolving]
  - Cortisol abnormal [Recovered/Resolved]
  - Intentional self-injury [Unknown]
  - Epistaxis [Not Recovered/Not Resolved]
  - Localised infection [Recovered/Resolved]
  - Arthralgia [Not Recovered/Not Resolved]
  - Increased tendency to bruise [Not Recovered/Not Resolved]
  - Fatigue [Not Recovered/Not Resolved]
  - Iron deficiency [Unknown]
  - Thyroid disorder [Unknown]
